FAERS Safety Report 4550172-3 (Version None)
Quarter: 2005Q1

REPORT INFORMATION
  Report Type: 
  Country: None (occurrence: None)
  Receive Date: 20050107
  Receipt Date: 20041222
  Transmission Date: 20050727
  Serious: Yes (Hospitalization)
  Sender: FDA-Public Use
  Company Number: GXKR2004US00645

PATIENT
  Age: 74 Year
  Sex: Male

DRUGS (2)
  1. LISINOPRIL [Suspect]
     Dosage: 10 - 30 MG
  2. MIRTAZAPINE [Suspect]
     Indication: DEPRESSION
     Dosage: 30 - 45 MG

REACTIONS (3)
  - CONFUSIONAL STATE [None]
  - MUSCLE RIGIDITY [None]
  - RHABDOMYOLYSIS [None]
